FAERS Safety Report 5485025-X (Version None)
Quarter: 2007Q4

REPORT INFORMATION
  Report Type: 
  Country: None (occurrence: None)
  Receive Date: 20071015
  Receipt Date: 20071008
  Transmission Date: 20080405
  Serious: Yes (Other)
  Sender: FDA-Public Use
  Company Number: PHEH2006US04085

PATIENT
  Age: 68 Year
  Sex: Female
  Weight: 69.841 kg

DRUGS (5)
  1. AREDIA [Suspect]
     Indication: METASTASES TO BONE
     Dates: start: 20010723
  2. ZOMETA [Suspect]
     Indication: METASTASES TO BONE
     Dosage: UNK Q4WKS
  3. THALIDOMIDE [Concomitant]
     Indication: MULTIPLE MYELOMA
     Dosage: 100MG QD
  4. TAMOXIFEN CITRATE [Concomitant]
     Indication: BREAST CANCER
     Dates: start: 19990201, end: 20031027
  5. FLECAINIDE ACETATE [Concomitant]
     Indication: ATRIAL FIBRILLATION

REACTIONS (14)
  - BONE DISORDER [None]
  - BONE SWELLING [None]
  - BREAST CANCER IN SITU [None]
  - BREAST RECONSTRUCTION [None]
  - GINGIVAL PAIN [None]
  - GINGIVITIS [None]
  - GRANULOMA [None]
  - INFECTION [None]
  - JAW FRACTURE [None]
  - LYMPHOMA [None]
  - MASTECTOMY [None]
  - OSTEONECROSIS [None]
  - PAIN [None]
  - PRIMARY SEQUESTRUM [None]
